FAERS Safety Report 4276644-7 (Version None)
Quarter: 2004Q1

REPORT INFORMATION
  Report Type: 
  Country: None (occurrence: None)
  Receive Date: 20040120
  Receipt Date: 20040113
  Transmission Date: 20041129
  Serious: Yes (Hospitalization, Disabling)
  Sender: FDA-Public Use
  Company Number: HQ5441520NOV2002

PATIENT
  Age: 45 Year
  Sex: Female
  Weight: 54.48 kg

DRUGS (2)
  1. DIMETAPP [Suspect]
     Indication: SINUSITIS
     Dosage: 1 TABLET 2 X PER DAY ORAL
     Route: 048
     Dates: start: 19910806, end: 19910810
  2. ROBITUSSIN CF (GUAIFENESIN/DEXTROMETHORPHAN/PHENYLPROPANOLAMINE, SYRUP [Suspect]
     Indication: COUGH
     Dosage: 1 TEASPOON AT BEDTIME, ORAL
     Route: 048
     Dates: start: 19910806, end: 19910810

REACTIONS (4)
  - BRAIN OEDEMA [None]
  - HAEMORRHAGIC STROKE [None]
  - NEUROGENIC BLADDER [None]
  - SUBARACHNOID HAEMORRHAGE [None]
